FAERS Safety Report 23413979 (Version 3)
Quarter: 2024Q1

REPORT INFORMATION
  Report Type: Report from Study
  Country: CA (occurrence: CA)
  Receive Date: 20240117
  Receipt Date: 20240207
  Transmission Date: 20240409
  Serious: Yes (Other)
  Sender: FDA-Public Use
  Company Number: CA-JNJFOC-20231253335

PATIENT
  Age: 62 Year
  Sex: Female
  Weight: 68 kg

DRUGS (2)
  1. REMICADE [Suspect]
     Active Substance: INFLIXIMAB
     Indication: Colitis ulcerative
     Route: 041
     Dates: start: 20220926, end: 20231011
  2. PREDNISONE [Concomitant]
     Active Substance: PREDNISONE
     Indication: Colitis ulcerative
     Route: 048
     Dates: start: 20231215

REACTIONS (6)
  - Lupus-like syndrome [Unknown]
  - Psoriasis [Not Recovered/Not Resolved]
  - Inflammation [Not Recovered/Not Resolved]
  - Illness [Unknown]
  - Headache [Unknown]
  - Dizziness [Unknown]

NARRATIVE: CASE EVENT DATE: 20230901
